FAERS Safety Report 8917695 (Version 2)
Quarter: 2012Q4

REPORT INFORMATION
  Report Type: 
  Country: US (occurrence: US)
  Receive Date: 20121119
  Receipt Date: 20121205
  Transmission Date: 20130627
  Serious: No
  Sender: FDA-Public Use
  Company Number: US-009507513-1211USA006480

PATIENT
  Sex: Female
  Weight: 63.95 kg

DRUGS (3)
  1. CLARITIN LIQUIGELS [Suspect]
     Indication: HYPERSENSITIVITY
     Dosage: 10 mg, Once
     Route: 048
     Dates: start: 2012
  2. CLARITIN LIQUIGELS [Suspect]
     Indication: SNEEZING
  3. CLARITIN LIQUIGELS [Suspect]
     Indication: EYE PRURITUS

REACTIONS (7)
  - Burning sensation [Recovered/Resolved]
  - Rhinorrhoea [Recovered/Resolved]
  - Nasopharyngitis [Recovered/Resolved]
  - Condition aggravated [Recovered/Resolved]
  - Feeling hot [Recovered/Resolved]
  - Dizziness [Recovered/Resolved]
  - Drug effect increased [Recovered/Resolved]
